FAERS Safety Report 9332851 (Version 1)
Quarter: 2013Q2

REPORT INFORMATION
  Report Type: Spontaneous
  Country: CH (occurrence: None)
  Receive Date: 20130603
  Receipt Date: 20130603
  Transmission Date: 20140414
  Serious: Yes (Other)
  Sender: FDA-Public Use
  Company Number: ACO_36464_2013

PATIENT
  Sex: 0

DRUGS (1)
  1. TIZANIDINE [Suspect]
     Indication: PRODUCT USED FOR UNKNOWN INDICATION

REACTIONS (8)
  - Coma [None]
  - Respiratory failure [None]
  - Hypotonia [None]
  - Ataxia [None]
  - Disorientation [None]
  - Bradycardia [None]
  - Hypotension [None]
  - Somnolence [None]
